FAERS Safety Report 9557124 (Version 1)
Quarter: 2013Q3

REPORT INFORMATION
  Report Type: Spontaneous
  Country: US (occurrence: US)
  Receive Date: 20130926
  Receipt Date: 20130926
  Transmission Date: 20140515
  Serious: Yes (Hospitalization, Other)
  Sender: FDA-Public Use
  Company Number: US-PFIZER INC-2013275763

PATIENT
  Age: 44 Year
  Sex: Male

DRUGS (6)
  1. IBUPROFEN [Suspect]
     Indication: NONSPECIFIC REACTION
     Dosage: SIX TO EIGHT TABLETS AND AS REQUIRED
     Route: 065
  2. IBUPROFEN [Suspect]
     Indication: PAIN
  3. ROSUVASTATIN [Concomitant]
     Dosage: UNSPECIFIED OVER SIX MONTHS
     Route: 065
  4. FISH OIL [Concomitant]
     Route: 065
  5. ASCORBIC ACID [Concomitant]
     Route: 065
  6. MULTIVITAMINS [Concomitant]
     Dosage: UNSPECIFIED, OVER A YEAR
     Route: 065

REACTIONS (3)
  - Neutropenia [Recovered/Resolved]
  - Asthenia [Recovered/Resolved]
  - Lymphadenopathy [Recovered/Resolved]
